FAERS Safety Report 15262347 (Version 1)
Quarter: 2018Q3

REPORT INFORMATION
  Report Type: Report from Study
  Country: BR (occurrence: BR)
  Receive Date: 20180809
  Receipt Date: 20180809
  Transmission Date: 20181010
  Serious: Yes (Disabling)
  Sender: FDA-Public Use
  Company Number: PHHY2018BR067409

PATIENT

DRUGS (1)
  1. TOBI [Suspect]
     Active Substance: TOBRAMYCIN
     Indication: CYSTIC FIBROSIS
     Dosage: 4 DF (4 CAPSULES OF 28MG), BID
     Route: 065

REACTIONS (2)
  - Lung disorder [Not Recovered/Not Resolved]
  - Bronchial hyperreactivity [Unknown]
